FAERS Safety Report 21323558 (Version 1)
Quarter: 2022Q3

REPORT INFORMATION
  Report Type: Spontaneous
  Country: JP (occurrence: JP)
  Receive Date: 20220912
  Receipt Date: 20220912
  Transmission Date: 20221027
  Serious: Yes (Other)
  Sender: FDA-Public Use
  Company Number: JP-SUN PHARMACEUTICAL INDUSTRIES LTD-2022RR-353434

PATIENT
  Age: 65 Year
  Sex: Male

DRUGS (3)
  1. CARBAMAZEPINE [Interacting]
     Active Substance: CARBAMAZEPINE
     Indication: Epilepsy
     Dosage: 600 MILLIGRAM, UNK
     Route: 065
  2. IMATINIB [Interacting]
     Active Substance: IMATINIB
     Indication: Gastrointestinal stromal tumour
     Dosage: 400 MILLIGRAM, DAILY
     Route: 065
  3. PHENYTOIN [Interacting]
     Active Substance: PHENYTOIN
     Indication: Epilepsy
     Dosage: 175 MILLIGRAM, UNK
     Route: 065

REACTIONS (4)
  - Drug interaction [Unknown]
  - Anaemia [Unknown]
  - Aspartate aminotransferase increased [Unknown]
  - Alanine aminotransferase increased [Unknown]
